FAERS Safety Report 5594698-2 (Version None)
Quarter: 2008Q1

REPORT INFORMATION
  Report Type: 
  Country: None (occurrence: None)
  Receive Date: 20080117
  Receipt Date: 20080108
  Transmission Date: 20080703
  Serious: Yes (Hospitalization)
  Sender: FDA-Public Use
  Company Number: US-AMGEN-QUU258696

PATIENT
  Sex: Male

DRUGS (4)
  1. ENBREL [Suspect]
     Indication: RHEUMATOID ARTHRITIS
     Route: 058
     Dates: start: 20061201, end: 20071225
  2. METHOTREXATE [Concomitant]
     Route: 058
  3. LEFLUNOMIDE [Concomitant]
     Route: 048
     Dates: start: 20061201
  4. PREDNISONE TAB [Concomitant]

REACTIONS (3)
  - DRUG EFFECT DECREASED [None]
  - PYREXIA [None]
  - RHEUMATOID ARTHRITIS [None]
